FAERS Safety Report 13292534 (Version 3)
Quarter: 2018Q1

REPORT INFORMATION
  Report Type: Spontaneous
  Country: IT (occurrence: IT)
  Receive Date: 20170303
  Receipt Date: 20180214
  Transmission Date: 20180508
  Serious: Yes (Other)
  Sender: FDA-Public Use
  Company Number: IT-JNJFOC-20170226734

PATIENT
  Age: 43 Year
  Sex: Female
  Weight: 70 kg

DRUGS (2)
  1. SERENASE [Suspect]
     Active Substance: HALOPERIDOL
     Indication: INTENTIONAL SELF-INJURY
     Route: 048
     Dates: start: 20170227, end: 20170227
  2. HALDOL [Suspect]
     Active Substance: HALOPERIDOL
     Indication: INTENTIONAL SELF-INJURY
     Route: 048
     Dates: start: 20170227, end: 20170227

REACTIONS (4)
  - Drug abuse [Unknown]
  - Bradycardia [Unknown]
  - Coma [Unknown]
  - Pain [Unknown]

NARRATIVE: CASE EVENT DATE: 20170227
